FAERS Safety Report 24787424 (Version 1)
Quarter: 2024Q4

REPORT INFORMATION
  Report Type: Report from Study
  Country: US (occurrence: US)
  Receive Date: 20241230
  Receipt Date: 20241230
  Transmission Date: 20250115
  Serious: No
  Sender: SUNOVION
  Company Number: US-SUMITOMO PHARMA SWITZERLAND GMBH-2024SPA005882

PATIENT

DRUGS (7)
  1. ORGOVYX [Suspect]
     Active Substance: RELUGOLIX
     Indication: Prostate cancer
     Dosage: 360 MG, SINGLE
     Route: 048
     Dates: start: 202411, end: 202411
  2. ORGOVYX [Suspect]
     Active Substance: RELUGOLIX
     Dosage: 120 MG, QD
     Route: 048
     Dates: start: 202411
  3. VITAMINS [Concomitant]
     Active Substance: VITAMINS
     Route: 065
  4. NUBEQA [Concomitant]
     Active Substance: DAROLUTAMIDE
     Route: 065
  5. VITAMIN A [Concomitant]
     Active Substance: VITAMIN A
     Route: 065
  6. VITAMIN D [Concomitant]
     Active Substance: VITAMIN D NOS
     Route: 065
  7. VITAMIN K [Concomitant]
     Active Substance: PHYTONADIONE
     Route: 065

REACTIONS (1)
  - Depression [Unknown]
